FAERS Safety Report 4658337-7 (Version None)
Quarter: 2005Q2

REPORT INFORMATION
  Report Type: 
  Country: None (occurrence: None)
  Receive Date: 20050509
  Receipt Date: 20050426
  Transmission Date: 20051028
  Serious: Yes (Other)
  Sender: FDA-Public Use
  Company Number: 2005065960

PATIENT
  Age: 54 Year
  Sex: Male
  Weight: 147.419 kg

DRUGS (4)
  1. CELEBREX [Suspect]
     Indication: ARTHROPATHY
     Dosage: 2 IN 1 D ORAL
     Route: 048
  2. BEXTRA [Suspect]
     Indication: ARTHROPATHY
     Dosage: 10 MG (10 MG, 1 IN 1 D) ORAL
     Route: 048
  3. TRAMADOL HCL [Concomitant]
  4. VITAMINS [Concomitant]

REACTIONS (3)
  - ABDOMINAL PAIN UPPER [None]
  - DRUG EFFECT DECREASED [None]
  - GASTRIC PH DECREASED [None]
